FAERS Safety Report 4456544-X (Version None)
Quarter: 2004Q3

REPORT INFORMATION
  Report Type: 
  Country: None (occurrence: None)
  Receive Date: 20040921
  Receipt Date: 20040914
  Transmission Date: 20050211
  Serious: Yes (Hospitalization)
  Sender: FDA-Public Use
  Company Number: 2004233512SE

PATIENT
  Age: 74 Year
  Sex: Male

DRUGS (1)
  1. CABERGOLINE [Suspect]
     Indication: RESTLESS LEGS SYNDROME
     Dosage: 2 MG/DAY, ORAL
     Route: 048
     Dates: start: 20020101

REACTIONS (1)
  - PLEURISY [None]
